FAERS Safety Report 5033890-2 (Version None)
Quarter: 2006Q2

REPORT INFORMATION
  Report Type: 
  Country: None (occurrence: None)
  Receive Date: 20060623
  Receipt Date: 20060518
  Transmission Date: 20061013
  Serious: Yes (Other)
  Sender: FDA-Public Use
  Company Number: PHBS2006JP07612

PATIENT
  Age: 63 Year
  Sex: Female
  Weight: 51 kg

DRUGS (14)
  1. NEORAL [Suspect]
     Indication: INTERSTITIAL LUNG DISEASE
     Dosage: 100 MG/D
     Route: 048
     Dates: start: 20041125
  2. NEORAL [Suspect]
     Dosage: 50 MG/D
     Route: 048
     Dates: start: 20060501
  3. MEDROL [Concomitant]
     Indication: INTERSTITIAL LUNG DISEASE
     Dosage: 20 MG/D
     Route: 048
     Dates: start: 20040722
  4. CLARITHROMYCIN [Concomitant]
  5. MUCODYNE [Concomitant]
     Indication: INTERSTITIAL LUNG DISEASE
     Dosage: 1500 MG/D
     Route: 048
     Dates: start: 20040722
  6. OMEPRAL [Concomitant]
     Indication: GASTRIC ULCER
     Dosage: 10 MG/D
     Route: 048
     Dates: start: 20040819
  7. HUSCODE [Concomitant]
     Indication: INTERSTITIAL LUNG DISEASE
     Dosage: 60 MG/DAY
     Route: 048
     Dates: start: 20040722
  8. LIPITOR [Concomitant]
     Indication: HYPERLIPIDAEMIA
     Dosage: 10 MG/D
     Route: 048
     Dates: start: 20050304
  9. FOSAMAX [Concomitant]
     Indication: OSTEOPOROSIS PROPHYLAXIS
     Dosage: 5 MG/D
     Route: 048
     Dates: start: 20041216
  10. BASEN [Concomitant]
     Indication: DIABETES MELLITUS
     Dosage: 0.9 MG/D
     Route: 048
     Dates: start: 20050204
  11. BAKTAR [Concomitant]
     Indication: INFECTION PROPHYLAXIS
     Dosage: 1920 MG/D
     Route: 048
     Dates: start: 20060316
  12. MAGMITT KENEI [Concomitant]
  13. DENOSINE ^TANABE^ [Suspect]
     Indication: PNEUMONIA CYTOMEGALOVIRAL
     Dosage: 500 MG/D
     Route: 041
     Dates: start: 20060511
  14. DENOSINE ^TANABE^ [Suspect]
     Dosage: 250 MG/DAY
     Route: 041
     Dates: start: 20060515

REACTIONS (11)
  - C-REACTIVE PROTEIN INCREASED [None]
  - CONDITION AGGRAVATED [None]
  - CONSTIPATION [None]
  - DRUG LEVEL INCREASED [None]
  - HYPOXIA [None]
  - INTERSTITIAL LUNG DISEASE [None]
  - PLATELET COUNT DECREASED [None]
  - PNEUMONIA CYTOMEGALOVIRAL [None]
  - PYREXIA [None]
  - THROMBOCYTOPENIA [None]
  - WHITE BLOOD CELL COUNT INCREASED [None]
